FAERS Safety Report 13778329 (Version 2)
Quarter: 2018Q1

REPORT INFORMATION
  Report Type: Spontaneous
  Country: US (occurrence: US)
  Receive Date: 20170721
  Receipt Date: 20180220
  Transmission Date: 20180508
  Serious: No
  Sender: FDA-Public Use
  Company Number: US-TEVA-769784ACC

PATIENT
  Sex: Female

DRUGS (1)
  1. AMPHETAMINE W/DEXTROAMPHETAMINE [Suspect]
     Active Substance: AMPHETAMINE SULFATE\DEXTROAMPHETAMINE
     Indication: ATTENTION DEFICIT/HYPERACTIVITY DISORDER
     Dosage: USING THE PRODUCT FOR THE PAST WEEK

REACTIONS (6)
  - Eating disorder [Unknown]
  - Dysgraphia [Unknown]
  - Disturbance in attention [Unknown]
  - Drug ineffective [Unknown]
  - Apathy [Unknown]
  - Decreased activity [Unknown]
